FAERS Safety Report 9635326 (Version 2)
Quarter: 2013Q4

REPORT INFORMATION
  Report Type: Spontaneous
  Country: US (occurrence: US)
  Receive Date: 20131021
  Receipt Date: 20131021
  Transmission Date: 20140711
  Serious: No
  Sender: FDA-Public Use
  Company Number: US-PURDUE-USA-2013-0102299

PATIENT
  Sex: Female

DRUGS (2)
  1. BUTRANS [Suspect]
     Indication: MUSCULOSKELETAL CHEST PAIN
     Dosage: 10 MCG/HR, UNK
     Route: 062
     Dates: start: 20130508
  2. PERCOCET                           /00867901/ [Concomitant]
     Indication: PAIN
     Dosage: 1 TABLET, Q6H
     Route: 048

REACTIONS (1)
  - Drug ineffective [Unknown]
